FAERS Safety Report 5506314-6 (Version None)
Quarter: 2007Q4

REPORT INFORMATION
  Report Type: 
  Country: None (occurrence: None)
  Receive Date: 20071101
  Receipt Date: 20071023
  Transmission Date: 20080405
  Serious: Yes (Hospitalization)
  Sender: FDA-Public Use
  Company Number: SP01651

PATIENT
  Age: 38 Year
  Sex: Male

DRUGS (1)
  1. MOVIPREP [Suspect]
     Dosage: ORAL
     Route: 048

REACTIONS (1)
  - RENAL FAILURE [None]
